FAERS Safety Report 6219889-9 (Version None)
Quarter: 2009Q2

REPORT INFORMATION
  Report Type: 
  Country: None (occurrence: None)
  Receive Date: 20090609
  Receipt Date: 20090603
  Transmission Date: 20091009
  Serious: Yes (Other)
  Sender: FDA-Public Use
  Company Number: GB-MERCK-0906GBR00028

PATIENT
  Age: 62 Year
  Sex: Male
  Weight: 96 kg

DRUGS (3)
  1. JANUVIA [Suspect]
     Indication: TYPE 2 DIABETES MELLITUS
     Route: 048
     Dates: start: 20090210, end: 20090316
  2. GLICLAZIDE [Concomitant]
     Route: 065
     Dates: start: 20080101
  3. METFORMIN [Concomitant]
     Route: 065
     Dates: start: 20090210

REACTIONS (2)
  - AMNESIA [None]
  - CONFUSIONAL STATE [None]
